FAERS Safety Report 7277418-5 (Version None)
Quarter: 2011Q1

REPORT INFORMATION
  Report Type: 
  Country: None (occurrence: None)
  Receive Date: 20110207
  Receipt Date: 20110128
  Transmission Date: 20110831
  Serious: Yes (Hospitalization, Other)
  Sender: FDA-Public Use
  Company Number: US-JNJFOC-20100804656

PATIENT
  Sex: Female

DRUGS (3)
  1. LEVAQUIN [Suspect]
     Indication: INFECTION
     Route: 048
  2. PREDNISONE [Suspect]
     Indication: INFLAMMATION
     Route: 048
  3. CIPROFLOXACIN [Suspect]
     Indication: INFLAMMATION
     Route: 048

REACTIONS (6)
  - TENDONITIS [None]
  - TENDON RUPTURE [None]
  - TENOSYNOVITIS STENOSANS [None]
  - CARPAL TUNNEL SYNDROME [None]
  - EPICONDYLITIS [None]
  - JOINT INJURY [None]
